FAERS Safety Report 14835955 (Version 2)
Quarter: 2019Q1

REPORT INFORMATION
  Report Type: Spontaneous
  Country: JP (occurrence: JP)
  Receive Date: 20180502
  Receipt Date: 20190326
  Transmission Date: 20190417
  Serious: Yes (Other)
  Sender: FDA-Public Use
  Company Number: JP-ACTELION-A-CH2018-171482

PATIENT
  Age: 1 Year
  Sex: Female
  Weight: 5.12 kg

DRUGS (14)
  1. ADCIRCA [Concomitant]
     Active Substance: TADALAFIL
     Indication: PULMONARY ARTERIAL HYPERTENSION
     Dosage: 5 MG, QD
     Dates: end: 20180302
  2. VOLIBRIS [Concomitant]
     Active Substance: AMBRISENTAN
     Indication: PULMONARY ARTERIAL HYPERTENSION
     Dosage: 0.75 MG, QD
     Dates: end: 20180112
  3. ENALART [Concomitant]
     Active Substance: ENALAPRIL MALEATE
     Dosage: 1 MG, QD
  4. UPTRAVI [Suspect]
     Active Substance: SELEXIPAG
     Indication: PULMONARY ARTERIAL HYPERTENSION
     Dosage: 0.09 MG, BID
     Route: 048
     Dates: start: 20180217, end: 20180402
  5. UPTRAVI [Suspect]
     Active Substance: SELEXIPAG
     Dosage: 0.02 MG, BID
     Route: 048
     Dates: start: 20180104, end: 20180108
  6. VOLIBRIS [Concomitant]
     Active Substance: AMBRISENTAN
     Dosage: 1.0 MG, QD
     Dates: start: 20180113, end: 20180216
  7. VOLIBRIS [Concomitant]
     Active Substance: AMBRISENTAN
     Dosage: 1.1 MG, QD
     Dates: start: 20180217
  8. UPTRAVI [Suspect]
     Active Substance: SELEXIPAG
     Dosage: UNK, BID
     Route: 048
     Dates: start: 20180109, end: 20180109
  9. CARVEDILOL. [Concomitant]
     Active Substance: CARVEDILOL
     Dosage: 2.2 MG, QD
     Dates: start: 20180224
  10. UPTRAVI [Suspect]
     Active Substance: SELEXIPAG
     Dosage: 0.06 MG, BID
     Route: 048
     Dates: start: 20180116, end: 20180122
  11. ADCIRCA [Concomitant]
     Active Substance: TADALAFIL
     Dosage: 5.5 MG, QD
     Dates: start: 20180303
  12. UPTRAVI [Suspect]
     Active Substance: SELEXIPAG
     Dosage: 0.04 MG, BID
     Route: 048
     Dates: start: 20180110, end: 20180115
  13. UPTRAVI [Suspect]
     Active Substance: SELEXIPAG
     Dosage: 0.085 MG, BID
     Route: 048
     Dates: start: 20180123, end: 20180216
  14. CARVEDILOL. [Concomitant]
     Active Substance: CARVEDILOL
     Dosage: 2 MG, QD
     Dates: end: 20180223

REACTIONS (1)
  - Cardiac operation [Unknown]

NARRATIVE: CASE EVENT DATE: 201804
